FAERS Safety Report 4460292-X (Version None)
Quarter: 2004Q3

REPORT INFORMATION
  Report Type: 
  Country: None (occurrence: None)
  Receive Date: 20040928
  Receipt Date: 20040303
  Transmission Date: 20050211
  Serious: No
  Sender: FDA-Public Use
  Company Number: US-GLAXOSMITHKLINE-A0501027A

PATIENT
  Age: 66 Year
  Sex: Female

DRUGS (8)
  1. SEREVENT [Suspect]
     Indication: ASTHMA
     Route: 055
     Dates: start: 20031209
  2. FLOVENT [Concomitant]
  3. VENTOLIN [Concomitant]
  4. VERAPAMIL [Concomitant]
  5. FUROSEMIDE [Concomitant]
  6. CLONIDINE HCL [Concomitant]
  7. ALPRAZOLAM [Concomitant]
  8. HYDROCHLOROTHIAZIDE [Concomitant]

REACTIONS (2)
  - EYE PRURITUS [None]
  - RASH [None]
